FAERS Safety Report 7494895-5 (Version None)
Quarter: 2011Q2

REPORT INFORMATION
  Report Type: 
  Country: None (occurrence: None)
  Receive Date: 20110520
  Receipt Date: 20110516
  Transmission Date: 20111010
  Serious: Yes (Other)
  Sender: FDA-Public Use
  Company Number: US-ABBOTT-11P-163-0726843-00

PATIENT
  Sex: Female

DRUGS (4)
  1. HUMIRA [Suspect]
     Indication: PSORIASIS
     Dates: start: 20090101, end: 20100101
  2. HUMIRA [Suspect]
     Indication: CROHN'S DISEASE
  3. METFORMIN HCL [Concomitant]
     Indication: DIABETES MELLITUS
  4. METOPROLOL SUCCINATE [Concomitant]
     Indication: PRODUCT USED FOR UNKNOWN INDICATION

REACTIONS (4)
  - VISUAL IMPAIRMENT [None]
  - BLOOD GLUCOSE ABNORMAL [None]
  - PSORIASIS [None]
  - BLINDNESS [None]
